FAERS Safety Report 10501428 (Version 1)
Quarter: 2014Q4

REPORT INFORMATION
  Report Type: Spontaneous
  Country: US (occurrence: None)
  Receive Date: 20141006
  Receipt Date: 20141006
  Transmission Date: 20150528
  Serious: No
  Sender: FDA-Public Use
  Company Number: None

PATIENT
  Age: 61 Year
  Sex: Male
  Weight: 83.8 kg

DRUGS (1)
  1. DABIGATRAN [Suspect]
     Active Substance: DABIGATRAN
     Indication: ATRIAL FIBRILLATION
     Dosage: MG  BID  PO
     Route: 048
     Dates: start: 20140522, end: 20140619

REACTIONS (5)
  - Abdominal pain [None]
  - Haematochezia [None]
  - Haemorrhoids [None]
  - Gastric haemorrhage [None]
  - Intestinal mass [None]

NARRATIVE: CASE EVENT DATE: 20140619
